FAERS Safety Report 21259376 (Version 1)
Quarter: 2022Q3

REPORT INFORMATION
  Report Type: Report from Study
  Country: US (occurrence: US)
  Receive Date: 20220826
  Receipt Date: 20220826
  Transmission Date: 20221027
  Serious: Yes (Other)
  Sender: FDA-Public Use
  Company Number: US-ABBVIE-22K-163-4517154-00

PATIENT
  Sex: Male

DRUGS (2)
  1. SKYRIZI [Suspect]
     Active Substance: RISANKIZUMAB-RZAA
     Indication: Nasal polyps
     Dosage: AT WEEEK 4, THEN EVERY 12 WEEKS
     Route: 058
     Dates: start: 20220614
  2. SKYRIZI [Suspect]
     Active Substance: RISANKIZUMAB-RZAA
     Indication: Psoriasis

REACTIONS (6)
  - Surgery [Unknown]
  - Chronic sinusitis [Unknown]
  - Laryngeal polyp [Unknown]
  - Oral candidiasis [Unknown]
  - COVID-19 [Unknown]
  - Asthma [Unknown]

NARRATIVE: CASE EVENT DATE: 20220101
